FAERS Safety Report 13864045 (Version 1)
Quarter: 2017Q3

REPORT INFORMATION
  Report Type: Spontaneous
  Country: JP (occurrence: JP)
  Receive Date: 20170814
  Receipt Date: 20170814
  Transmission Date: 20171127
  Serious: Yes (Death, Other)
  Sender: FDA-Public Use
  Company Number: JP-ASTELLAS-2017JP015627AA

PATIENT
  Age: 60 Year
  Sex: Male

DRUGS (2)
  1. FUNGUARD [Suspect]
     Active Substance: MICAFUNGIN SODIUM
     Indication: OPPORTUNISTIC INFECTION
     Route: 041
  2. FUNGUARD [Suspect]
     Active Substance: MICAFUNGIN SODIUM
     Indication: ASPERGILLUS INFECTION
     Route: 041

REACTIONS (1)
  - Toxic epidermal necrolysis [Fatal]
